FAERS Safety Report 4511229-6 (Version None)
Quarter: 2004Q4

REPORT INFORMATION
  Report Type: 
  Country: None (occurrence: None)
  Receive Date: 20041129
  Receipt Date: 20041115
  Transmission Date: 20050328
  Serious: Yes (Other)
  Sender: FDA-Public Use
  Company Number: FR-JNJFOC-20040404915

PATIENT
  Age: 52 Year
  Sex: Female
  Weight: 67 kg

DRUGS (6)
  1. REMICADE [Suspect]
     Indication: RHEUMATOID ARTHRITIS
     Route: 042
  2. CORTANCYL [Concomitant]
     Indication: RHEUMATOID ARTHRITIS
     Route: 049
  3. ACTONEL [Concomitant]
     Indication: RHEUMATOID ARTHRITIS
     Route: 049
  4. MOPRAL [Concomitant]
     Indication: RHEUMATOID ARTHRITIS
     Route: 049
  5. DAFALGAN [Concomitant]
     Indication: RHEUMATOID ARTHRITIS
     Route: 049
  6. METHOTREXATE [Concomitant]
     Indication: RHEUMATOID ARTHRITIS
     Route: 049

REACTIONS (1)
  - EOSINOPHILIA [None]
